FAERS Safety Report 12109418 (Version 1)
Quarter: 2016Q1

REPORT INFORMATION
  Report Type: Report from Study
  Country: US (occurrence: US)
  Receive Date: 20160224
  Receipt Date: 20160224
  Transmission Date: 20160526
  Serious: Yes (Hospitalization)
  Sender: FDA-Public Use
  Company Number: US-BIOGEN-2016BI00191762

PATIENT
  Sex: Female

DRUGS (1)
  1. TECFIDERA [Suspect]
     Active Substance: DIMETHYL FUMARATE
     Indication: MULTIPLE SCLEROSIS
     Route: 065
     Dates: start: 20141219

REACTIONS (14)
  - Coma [Recovered/Resolved]
  - Chronic obstructive pulmonary disease [Unknown]
  - Diarrhoea [Unknown]
  - Contusion [Unknown]
  - Nasopharyngitis [Unknown]
  - Loss of consciousness [Recovered/Resolved]
  - Renal failure [Unknown]
  - Back pain [Recovered/Resolved]
  - Malaise [Unknown]
  - Fall [Recovered/Resolved]
  - Pain in extremity [Recovered/Resolved]
  - Hot flush [Recovered/Resolved]
  - Influenza like illness [Unknown]
  - Hypoaesthesia [Unknown]
